FAERS Safety Report 16885680 (Version 1)
Quarter: 2019Q4

REPORT INFORMATION
  Report Type: Spontaneous
  Country: US (occurrence: US)
  Receive Date: 20190809
  Receipt Date: 20190809
  Transmission Date: 20200122
  Serious: Yes (Hospitalization)
  Sender: FDA-Public Use
  Company Number: None

PATIENT
  Age: 82 Year
  Sex: Female

DRUGS (1)
  1. XELJANZ [Suspect]
     Active Substance: TOFACITINIB CITRATE
     Indication: RHEUMATOID ARTHRITIS
     Route: 048
     Dates: start: 20181223

REACTIONS (5)
  - Cardiac failure congestive [None]
  - Cerebrovascular accident [None]
  - Chronic obstructive pulmonary disease [None]
  - Hypertension [None]
  - Therapy cessation [None]

NARRATIVE: CASE EVENT DATE: 20190803
